FAERS Safety Report 8217218 (Version 4)
Quarter: 2012Q4

REPORT INFORMATION
  Report Type: 
  Country: BR (occurrence: BR)
  Receive Date: 20111101
  Receipt Date: 20121228
  Transmission Date: 20130627
  Serious: Yes (Hospitalization, Other)
  Sender: FDA-Public Use
  Company Number: BR-BAYER-2011-104731

PATIENT
  Age: 38 Year
  Sex: Female

DRUGS (1)
  1. MIRANOVA [Suspect]
     Indication: ORAL CONTRACEPTION
     Dosage: 1 DF, QD
     Route: 048
     Dates: start: 2006, end: 201108

REACTIONS (10)
  - Haemorrhage in pregnancy [Recovered/Resolved]
  - Cervix dystocia [None]
  - Pregnancy on oral contraceptive [Recovered/Resolved]
  - Endometriosis [Recovered/Resolved]
  - Nausea [None]
  - Headache [None]
  - Migraine [Recovered/Resolved]
  - Foetal malposition [None]
  - Inappropriate schedule of drug administration [None]
  - Drug ineffective [None]
